FAERS Safety Report 22276075 (Version 1)
Quarter: 2023Q2

REPORT INFORMATION
  Report Type: Spontaneous
  Country: US (occurrence: US)
  Receive Date: 20230502
  Receipt Date: 20230502
  Transmission Date: 20230722
  Serious: No
  Sender: FDA-Public Use
  Company Number: US-AERIE-2022-002722

PATIENT

DRUGS (1)
  1. ROCKLATAN [Suspect]
     Active Substance: LATANOPROST\NETARSUDIL MESYLATE
     Indication: Open angle glaucoma
     Dosage: UNK
     Route: 047

REACTIONS (2)
  - Visual acuity reduced [Recovered/Resolved]
  - Corneal disorder [Recovered/Resolved]
